FAERS Safety Report 9798043 (Version 2)
Quarter: 2014Q1

REPORT INFORMATION
  Report Type: Spontaneous
  Country: US (occurrence: US)
  Receive Date: 20140106
  Receipt Date: 20140115
  Transmission Date: 20141002
  Serious: Yes (Death, Life-Threatening, Hospitalization, Other)
  Sender: FDA-Public Use
  Company Number: US-009507513-1401USA000659

PATIENT
  Sex: Male
  Weight: 81.63 kg

DRUGS (5)
  1. JANUVIA [Suspect]
     Indication: DIABETES MELLITUS
     Dosage: 100 MG, QD
     Route: 048
     Dates: start: 20080521
  2. JANUVIA [Suspect]
     Dosage: 100 MG, QD
     Route: 048
     Dates: start: 200808, end: 20080822
  3. JANUVIA [Suspect]
     Dosage: 100 MG, QD
     Route: 048
     Dates: end: 20081204
  4. ACTOS [Suspect]
     Indication: DIABETES MELLITUS
  5. METFORMIN [Suspect]
     Dosage: UNK
     Dates: end: 20080811

REACTIONS (17)
  - Pancreatic carcinoma [Fatal]
  - Urinary tract infection [Unknown]
  - Hypertensive crisis [Recovered/Resolved]
  - Dyslipidaemia [Unknown]
  - Coronary artery disease [Unknown]
  - Hypertension [Unknown]
  - Back pain [Unknown]
  - Gastrooesophageal reflux disease [Unknown]
  - Gallbladder disorder [Unknown]
  - Neuropathy peripheral [Unknown]
  - Diarrhoea [Not Recovered/Not Resolved]
  - Drug ineffective [Not Recovered/Not Resolved]
  - Duodenal ulcer [Unknown]
  - Local swelling [Recovered/Resolved]
  - Pulmonary mass [Unknown]
  - Tumour thrombosis [Unknown]
  - Abdominal pain [Unknown]
